FAERS Safety Report 15184935 (Version 3)
Quarter: 2018Q4

REPORT INFORMATION
  Report Type: Report from Study
  Country: US (occurrence: US)
  Receive Date: 20180723
  Receipt Date: 20181128
  Transmission Date: 20190204
  Serious: Yes (Hospitalization, Other)
  Sender: FDA-Public Use
  Company Number: US-AMGEN-USASP2018072134

PATIENT
  Age: 60 Year
  Sex: Female

DRUGS (10)
  1. AIMOVIG [Suspect]
     Active Substance: ERENUMAB-AOOE
     Indication: PROPHYLAXIS
     Dosage: 70 MG, QMO
     Route: 065
     Dates: start: 20181004
  2. REPATHA [Suspect]
     Active Substance: EVOLOCUMAB
     Indication: BLOOD CHOLESTEROL INCREASED
     Dosage: 140 MG/ML, Q2WK
     Route: 058
     Dates: start: 201804, end: 2018
  3. BUSPAR [Concomitant]
     Active Substance: BUSPIRONE HYDROCHLORIDE
     Dosage: 15 MG AT NIGHT AND 5 MG IN THE MORNING
  4. KLONOPIN [Concomitant]
     Active Substance: CLONAZEPAM
     Indication: ANXIETY
     Dosage: UNK UNK, TID
     Dates: start: 2015
  5. REPATHA [Suspect]
     Active Substance: EVOLOCUMAB
     Indication: HYPERCHOLESTEROLAEMIA
     Dosage: 140 MG, Q2WK
     Route: 065
  6. BUTALBITAL [Concomitant]
     Active Substance: BUTALBITAL
     Indication: MIGRAINE
     Dosage: UNK
  7. BENADRYL [Concomitant]
     Active Substance: DIPHENHYDRAMINE HYDROCHLORIDE
     Dosage: UNK
  8. NITRO [Concomitant]
     Active Substance: NITROGLYCERIN
     Dosage: 0.2 MG, UNK
  9. BOTOX [Concomitant]
     Active Substance: ONABOTULINUMTOXINA
     Indication: PROPHYLAXIS
     Dosage: UNK
  10. SEROQUEL [Concomitant]
     Active Substance: QUETIAPINE FUMARATE
     Dosage: 25 MG, TID

REACTIONS (21)
  - Swelling [Unknown]
  - Ear pain [Unknown]
  - Rhinorrhoea [Unknown]
  - Peripheral swelling [Unknown]
  - Hypoaesthesia [Not Recovered/Not Resolved]
  - Weight increased [Unknown]
  - Gait disturbance [Unknown]
  - Rash vesicular [Unknown]
  - Pruritus generalised [Not Recovered/Not Resolved]
  - Fatigue [Unknown]
  - Trigeminal neuralgia [Unknown]
  - Feeling abnormal [Unknown]
  - Blood glucose increased [Unknown]
  - Pain in extremity [Unknown]
  - Bipolar disorder [Unknown]
  - Hypoaesthesia oral [Not Recovered/Not Resolved]
  - Dyspnoea [Unknown]
  - Hypertension [Unknown]
  - Foreign body sensation in eyes [Unknown]
  - Back pain [Not Recovered/Not Resolved]
  - Wrong technique in product usage process [Unknown]

NARRATIVE: CASE EVENT DATE: 2018
